FAERS Safety Report 9011277 (Version 1)
Quarter: 2013Q1

REPORT INFORMATION
  Report Type: Spontaneous
  Country: US (occurrence: US)
  Receive Date: 20130111
  Receipt Date: 20130111
  Transmission Date: 20140127
  Serious: Yes (Other)
  Sender: FDA-Public Use
  Company Number: US-009507513-0909USA03453

PATIENT
  Age: 41 Year
  Sex: Female
  Weight: 53.52 kg

DRUGS (1)
  1. SINGULAIR [Suspect]
     Dosage: 1 DF, HS, ONE PILL ONCE AT NIGHT
     Route: 048

REACTIONS (2)
  - Vision blurred [Unknown]
  - Dry eye [Unknown]
